FAERS Safety Report 11714178 (Version 1)
Quarter: 2015Q4

REPORT INFORMATION
  Report Type: Spontaneous
  Country: US (occurrence: US)
  Receive Date: 20151109
  Receipt Date: 20151109
  Transmission Date: 20160304
  Serious: No
  Sender: FDA-Public Use
  Company Number: US-PFIZER INC-2015357022

PATIENT
  Age: 77 Year
  Sex: Male
  Weight: 73 kg

DRUGS (1)
  1. ADVIL [Suspect]
     Active Substance: IBUPROFEN
     Indication: TOOTH DISORDER
     Dosage: UNK

REACTIONS (5)
  - Abdominal pain upper [Unknown]
  - Abdominal discomfort [Unknown]
  - Product use issue [Unknown]
  - Eructation [Unknown]
  - Regurgitation [Unknown]
